FAERS Safety Report 11156586 (Version 1)
Quarter: 2015Q2

REPORT INFORMATION
  Report Type: Spontaneous
  Country: US (occurrence: None)
  Receive Date: 20150601
  Receipt Date: 20150601
  Transmission Date: 20150821
  Serious: Yes (Disabling, Other)
  Sender: FDA-Public Use
  Company Number: None

PATIENT
  Age: 66 Year
  Sex: Male
  Weight: 79.38 kg

DRUGS (16)
  1. OMEPRAZOLE. [Concomitant]
     Active Substance: OMEPRAZOLE
  2. QVAR [Concomitant]
     Active Substance: BECLOMETHASONE DIPROPIONATE
  3. ALBUTEROL INHALERS [Concomitant]
  4. TUMS [Concomitant]
     Active Substance: CALCIUM CARBONATE
  5. ACTIFED [Concomitant]
     Active Substance: PSEUDOEPHEDRINE HYDROCHLORIDE\TRIPROLIDINE HYDROCHLORIDE
  6. LORAZAPAM [Concomitant]
     Active Substance: LORAZEPAM
  7. CLINDAMYCIN OINTMENT [Concomitant]
  8. BUSEPAR [Concomitant]
  9. HYDROCORTIZONE CREAM [Concomitant]
  10. THYROID SUPPLEMENTS [Concomitant]
     Active Substance: UNSPECIFIED INGREDIENT
  11. MSM (SULPHUR) [Concomitant]
  12. IBUPROFEN. [Concomitant]
     Active Substance: IBUPROFEN
  13. VIT B,C,D,E [Concomitant]
  14. TAMSULOSIN HCL [Suspect]
     Active Substance: TAMSULOSIN
     Indication: BENIGN PROSTATIC HYPERPLASIA
     Dosage: AT BEDTIME
     Route: 048
  15. RENITADINE [Concomitant]
  16. FLAX OIL [Concomitant]

REACTIONS (8)
  - Skin discolouration [None]
  - Peripheral swelling [None]
  - Paraesthesia [None]
  - Limb discomfort [None]
  - Pain in extremity [None]
  - Asthenia [None]
  - Hypoaesthesia [None]
  - Nerve injury [None]

NARRATIVE: CASE EVENT DATE: 20150101
